FAERS Safety Report 19192143 (Version 1)
Quarter: 2021Q2

REPORT INFORMATION
  Report Type: Spontaneous
  Country: AU (occurrence: AU)
  Receive Date: 20210428
  Receipt Date: 20210428
  Transmission Date: 20210717
  Serious: Yes (Hospitalization, Other)
  Sender: FDA-Public Use
  Company Number: NVSC2021AU092854

PATIENT

DRUGS (2)
  1. ENTRESTO [Suspect]
     Active Substance: SACUBITRIL\VALSARTAN
     Indication: PRODUCT USED FOR UNKNOWN INDICATION
     Dosage: UNK UNK, UNKNOWN
     Route: 065
  2. ENTRESTO [Suspect]
     Active Substance: SACUBITRIL\VALSARTAN
     Dosage: UNK, UNKNOWN (LOW DOSE ENTRESTO WHICH THE PATIENT IS NOW TOLERATING)
     Route: 065

REACTIONS (4)
  - Hypotension [Unknown]
  - Blood creatinine increased [Unknown]
  - Acute kidney injury [Recovering/Resolving]
  - Cardiac failure [Unknown]
